FAERS Safety Report 24456307 (Version 2)
Quarter: 2024Q4

REPORT INFORMATION
  Report Type: Spontaneous
  Country: UA (occurrence: UA)
  Receive Date: 20241017
  Receipt Date: 20241018
  Transmission Date: 20250115
  Serious: No
  Sender: ROCHE
  Company Number: UA-ROCHE-3510293

PATIENT
  Sex: Male

DRUGS (7)
  1. MABTHERA [Suspect]
     Active Substance: RITUXIMAB
     Indication: Glomerulonephritis membranous
     Route: 041
  2. MABTHERA [Suspect]
     Active Substance: RITUXIMAB
     Indication: Nephrotic syndrome
  3. CYCLOPHOSPHAMIDE [Concomitant]
     Active Substance: CYCLOPHOSPHAMIDE
  4. FOSINOPRIL [Concomitant]
     Active Substance: FOSINOPRIL
  5. DAPAGLIFLOZIN [Concomitant]
     Active Substance: DAPAGLIFLOZIN
  6. ASPIRIN [Concomitant]
     Active Substance: ASPIRIN
  7. XIPAMIDE [Concomitant]
     Active Substance: XIPAMIDE

REACTIONS (2)
  - Off label use [Unknown]
  - No adverse event [Unknown]
